FAERS Safety Report 19263528 (Version 2)
Quarter: 2021Q2

REPORT INFORMATION
  Report Type: Report from Study
  Country: None (occurrence: US)
  Receive Date: 20210517
  Receipt Date: 20210602
  Transmission Date: 20210717
  Serious: Yes (Hospitalization, Other)
  Sender: FDA-Public Use
  Company Number: US-ABBVIE-21K-163-3904557-00

PATIENT
  Age: 50 Year
  Sex: Female
  Weight: 61.29 kg

DRUGS (3)
  1. HUMIRA [Suspect]
     Active Substance: ADALIMUMAB
     Route: 058
  2. METHADONE [Concomitant]
     Active Substance: METHADONE HYDROCHLORIDE
     Indication: PAIN
  3. HUMIRA [Suspect]
     Active Substance: ADALIMUMAB
     Indication: RHEUMATOID ARTHRITIS
     Dosage: CITRATE FREE
     Route: 058
     Dates: start: 2014

REACTIONS (8)
  - Osteoarthritis [Recovered/Resolved]
  - SARS-CoV-2 test positive [Recovered/Resolved]
  - Knee operation [Unknown]
  - Cervical vertebral fracture [Recovered/Resolved]
  - Spinal operation [Unknown]
  - Fall [Recovered/Resolved]
  - Infection [Recovered/Resolved]
  - SARS-CoV-2 test false positive [Recovered/Resolved]

NARRATIVE: CASE EVENT DATE: 202104
